FAERS Safety Report 19503334 (Version 3)
Quarter: 2021Q3

REPORT INFORMATION
  Report Type: Report from Study
  Country: BR (occurrence: BR)
  Receive Date: 20210707
  Receipt Date: 20210901
  Transmission Date: 20211014
  Serious: Yes (Other)
  Sender: FDA-Public Use
  Company Number: NVSC2021BR149928

PATIENT
  Sex: Male
  Weight: 80 kg

DRUGS (4)
  1. COGLIVE [Concomitant]
     Indication: DEMENTIA ALZHEIMER^S TYPE
     Dosage: 1 DF, QD (5 YEARS AGO)
     Route: 065
     Dates: start: 2016
  2. DONILA [Concomitant]
     Active Substance: DONEPEZIL HYDROCHLORIDE
     Indication: DEMENTIA ALZHEIMER^S TYPE
     Dosage: 1 DF, QD (5 YEARS AGO)
     Route: 048
     Dates: start: 2016
  3. EXELON [Suspect]
     Active Substance: RIVASTIGMINE TARTRATE
     Indication: DEMENTIA ALZHEIMER^S TYPE
     Dosage: 9.5 MG, QD PATCH 10 (CM2) (START ABOUT 5 YEARS AGO)
     Route: 062
  4. QUET XR [Concomitant]
     Active Substance: QUETIAPINE FUMARATE
     Indication: SLEEP DISORDER
     Dosage: UNK
     Route: 065
     Dates: start: 2016

REACTIONS (3)
  - Blood iron abnormal [Recovered/Resolved]
  - Amnesia [Not Recovered/Not Resolved]
  - Lethargy [Not Recovered/Not Resolved]
